FAERS Safety Report 17997003 (Version 1)
Quarter: 2020Q3

REPORT INFORMATION
  Report Type: Spontaneous
  Country: US (occurrence: US)
  Receive Date: 20200709
  Receipt Date: 20200709
  Transmission Date: 20201103
  Serious: No
  Sender: FDA-Public Use
  Company Number: US-ELI_LILLY_AND_COMPANY-US202006006698

PATIENT
  Age: 55 Year
  Sex: Male

DRUGS (22)
  1. HUMALOG [Suspect]
     Active Substance: INSULIN LISPRO
     Dosage: 48 U, EACH EVENING
     Route: 058
  2. HUMALOG [Suspect]
     Active Substance: INSULIN LISPRO
     Dosage: 48 U, DAILY (AT LUNCH, 1?2 UNITS EXTRA SOMETIMES)
     Route: 058
  3. HUMALOG [Suspect]
     Active Substance: INSULIN LISPRO
     Dosage: 52 U, EACH MORNING
     Route: 058
  4. HUMALOG [Suspect]
     Active Substance: INSULIN LISPRO
     Dosage: 48 U, EACH EVENING
     Route: 058
  5. HUMALOG [Suspect]
     Active Substance: INSULIN LISPRO
     Dosage: 48 U, EACH EVENING
     Route: 058
  6. METFORMIN [Concomitant]
     Active Substance: METFORMIN HYDROCHLORIDE
     Indication: DIABETES MELLITUS
  7. HUMALOG [Suspect]
     Active Substance: INSULIN LISPRO
     Dosage: 48 U, DAILY (AT LUNCH, 1?2 UNITS EXTRA SOMETIMES)
     Route: 058
  8. HUMALOG [Suspect]
     Active Substance: INSULIN LISPRO
     Dosage: 48 U, DAILY (AT LUNCH, 1?2 UNITS EXTRA SOMETIMES)
     Route: 058
  9. HUMALOG [Suspect]
     Active Substance: INSULIN LISPRO
     Indication: DIABETES MELLITUS
     Dosage: 52 U, EACH MORNING
     Route: 058
  10. HUMALOG [Suspect]
     Active Substance: INSULIN LISPRO
     Dosage: 48 U, DAILY (AT LUNCH, 1?2 UNITS EXTRA SOMETIMES)
     Route: 058
  11. HUMALOG [Suspect]
     Active Substance: INSULIN LISPRO
     Dosage: 52 U, EACH MORNING
     Route: 058
  12. HUMALOG [Suspect]
     Active Substance: INSULIN LISPRO
     Dosage: 48 U, DAILY (AT LUNCH, 1?2 UNITS EXTRA SOMETIMES)
     Route: 058
  13. HUMALOG [Suspect]
     Active Substance: INSULIN LISPRO
     Dosage: 48 U, EACH EVENING
     Route: 058
  14. HUMALOG [Suspect]
     Active Substance: INSULIN LISPRO
     Dosage: 48 U, EACH EVENING
     Route: 058
  15. HUMALOG [Suspect]
     Active Substance: INSULIN LISPRO
     Dosage: 48 U, DAILY (AT LUNCH, 1?2 UNITS EXTRA SOMETIMES)
     Route: 058
  16. HUMALOG [Suspect]
     Active Substance: INSULIN LISPRO
     Dosage: 52 U, EACH MORNING
     Route: 058
  17. HUMALOG [Suspect]
     Active Substance: INSULIN LISPRO
     Dosage: 48 U, DAILY (AT LUNCH, 1?2 UNITS EXTRA SOMETIMES)
     Route: 058
  18. HUMALOG [Suspect]
     Active Substance: INSULIN LISPRO
     Indication: DIABETES MELLITUS
     Dosage: 52 U, EACH MORNING
     Route: 058
  19. HUMALOG [Suspect]
     Active Substance: INSULIN LISPRO
     Indication: DIABETES MELLITUS
     Dosage: 52 U, EACH MORNING
     Route: 058
  20. HUMALOG [Suspect]
     Active Substance: INSULIN LISPRO
     Dosage: 48 U, EACH EVENING
     Route: 058
  21. HUMALOG [Suspect]
     Active Substance: INSULIN LISPRO
     Dosage: 52 U, EACH MORNING
     Route: 058
  22. HUMALOG [Suspect]
     Active Substance: INSULIN LISPRO
     Dosage: 48 U, EACH EVENING
     Route: 058

REACTIONS (3)
  - Blood glucose fluctuation [Not Recovered/Not Resolved]
  - Accidental underdose [Not Recovered/Not Resolved]
  - Injection site pain [Not Recovered/Not Resolved]

NARRATIVE: CASE EVENT DATE: 202001
